FAERS Safety Report 6756650-0 (Version None)
Quarter: 2010Q2

REPORT INFORMATION
  Report Type: 
  Country: None (occurrence: None)
  Receive Date: 20100604
  Receipt Date: 20100308
  Transmission Date: 20101027
  Serious: Yes (Hospitalization)
  Sender: FDA-Public Use
  Company Number: JP-MERCK-1006USA00722

PATIENT
  Age: 65 Year
  Sex: Male

DRUGS (4)
  1. JANUVIA [Suspect]
     Indication: DIABETES MELLITUS
     Route: 048
     Dates: start: 20100215
  2. AMARYL [Concomitant]
     Route: 048
     Dates: start: 20060101
  3. BASEN [Concomitant]
     Route: 048
     Dates: start: 20060101
  4. METFORMIN HYDROCHLORIDE [Concomitant]
     Route: 048
     Dates: start: 20060101

REACTIONS (2)
  - GASTROENTERITIS [None]
  - RENAL FAILURE [None]
